FAERS Safety Report 23721899 (Version 9)
Quarter: 2025Q2

REPORT INFORMATION
  Report Type: Report from Study
  Country: CA (occurrence: CA)
  Receive Date: 20240409
  Receipt Date: 20250401
  Transmission Date: 20250717
  Serious: Yes (Hospitalization, Other)
  Sender: SANDOZ
  Company Number: CA-NOVPHSZ-PHHY2018CA072313

PATIENT
  Sex: Female

DRUGS (19)
  1. ERELZI [Suspect]
     Active Substance: ETANERCEPT-SZZS
     Indication: Rheumatoid arthritis
     Dosage: 50 MG, QW
     Route: 058
     Dates: start: 20180809
  2. ERELZI [Suspect]
     Active Substance: ETANERCEPT-SZZS
     Dosage: 50 MG, WEEKLY
     Route: 058
  3. ERELZI [Suspect]
     Active Substance: ETANERCEPT-SZZS
     Dosage: 50 MG, QW
     Route: 058
     Dates: start: 20180921
  4. ERELZI [Suspect]
     Active Substance: ETANERCEPT-SZZS
     Dosage: 50 MG, QW
     Route: 058
     Dates: start: 20181021
  5. ERELZI [Suspect]
     Active Substance: ETANERCEPT-SZZS
     Dosage: 50 MG, QW
     Route: 058
     Dates: start: 20181111
  6. ERELZI [Suspect]
     Active Substance: ETANERCEPT-SZZS
     Dosage: 50 MG, QW
     Route: 058
     Dates: start: 20190814
  7. ERELZI [Suspect]
     Active Substance: ETANERCEPT-SZZS
     Dosage: 50 MG, QW
     Route: 058
  8. ERELZI [Suspect]
     Active Substance: ETANERCEPT-SZZS
     Dosage: 50 MG, QW,WEEKLY
     Route: 058
  9. ERELZI [Suspect]
     Active Substance: ETANERCEPT-SZZS
     Dosage: 50 MG, Q2W
     Route: 058
     Dates: start: 20180809
  10. WARFARIN [Suspect]
     Active Substance: WARFARIN
     Indication: Product used for unknown indication
     Route: 065
  11. CANNABIDIOL [Concomitant]
     Active Substance: CANNABIDIOL
     Indication: Product used for unknown indication
     Route: 065
  12. DOXYCYCLINE [Concomitant]
     Active Substance: DOXYCYCLINE
     Indication: Product used for unknown indication
     Route: 065
  13. LEFLUNOMIDE [Concomitant]
     Active Substance: LEFLUNOMIDE
     Indication: Product used for unknown indication
     Route: 065
  14. METHOTREXATE [Concomitant]
     Active Substance: METHOTREXATE
     Indication: Product used for unknown indication
     Route: 065
  15. MORPHINE [Concomitant]
     Active Substance: MORPHINE
     Indication: Product used for unknown indication
     Route: 065
  16. MORPHINE [Concomitant]
     Active Substance: MORPHINE
     Route: 065
  17. PLAQUENIL [Concomitant]
     Active Substance: HYDROXYCHLOROQUINE SULFATE
     Indication: Product used for unknown indication
     Route: 065
  18. PREDNISONE [Concomitant]
     Active Substance: PREDNISONE
     Indication: Product used for unknown indication
     Route: 065
  19. SULFASALAZINE [Concomitant]
     Active Substance: SULFASALAZINE
     Indication: Product used for unknown indication
     Route: 065

REACTIONS (64)
  - Dyspnoea [Unknown]
  - Cataract [Unknown]
  - Retinal tear [Unknown]
  - Rheumatoid arthritis [Unknown]
  - Thrombosis [Unknown]
  - Fatigue [Unknown]
  - Blindness [Unknown]
  - Macular hole [Unknown]
  - Burning sensation [Recovered/Resolved]
  - Blood disorder [Unknown]
  - Blood pressure systolic increased [Unknown]
  - Paraesthesia [Unknown]
  - Chest discomfort [Unknown]
  - Limb discomfort [Unknown]
  - Stress [Unknown]
  - Joint stiffness [Unknown]
  - Hypertension [Unknown]
  - Musculoskeletal discomfort [Unknown]
  - Hyperhidrosis [Unknown]
  - Feeling abnormal [Unknown]
  - Pain [Unknown]
  - Myalgia [Recovered/Resolved]
  - Muscular weakness [Unknown]
  - Visual impairment [Unknown]
  - Eye disorder [Unknown]
  - Hypoaesthesia [Unknown]
  - Swelling face [Unknown]
  - Pain in jaw [Unknown]
  - Arthralgia [Unknown]
  - Wound [Unknown]
  - Vitreous floaters [Unknown]
  - Back pain [Unknown]
  - COVID-19 [Recovered/Resolved]
  - Fatigue [Unknown]
  - Pain in extremity [Unknown]
  - COVID-19 [Unknown]
  - Fibromyalgia [Not Recovered/Not Resolved]
  - Osteoarthritis [Unknown]
  - Headache [Not Recovered/Not Resolved]
  - Tremor [Recovering/Resolving]
  - Oropharyngeal pain [Unknown]
  - Rhinorrhoea [Unknown]
  - Breast pain [Unknown]
  - Electric shock sensation [Unknown]
  - Neck pain [Unknown]
  - Asthenia [Recovering/Resolving]
  - Malaise [Unknown]
  - Dizziness [Unknown]
  - Muscular weakness [Unknown]
  - Vision blurred [Unknown]
  - Chest pain [Unknown]
  - Nausea [Recovering/Resolving]
  - Eye infection [Unknown]
  - Rhinitis [Unknown]
  - Gastroenteritis viral [Unknown]
  - Viral infection [Unknown]
  - Gingivitis [Unknown]
  - Urinary tract infection [Unknown]
  - Cystitis [Unknown]
  - Migraine [Not Recovered/Not Resolved]
  - Head discomfort [Unknown]
  - Product dose omission issue [Unknown]
  - Product dose omission in error [Unknown]
  - Off label use [Unknown]

NARRATIVE: CASE EVENT DATE: 20180101
